FAERS Safety Report 14394592 (Version 5)
Quarter: 2018Q4

REPORT INFORMATION
  Report Type: Report from Study
  Country: CZ (occurrence: CZ)
  Receive Date: 20180116
  Receipt Date: 20181220
  Transmission Date: 20190204
  Serious: Yes (Hospitalization)
  Sender: FDA-Public Use
  Company Number: CZ-PFIZER INC-2018004245

PATIENT
  Age: 65 Year
  Sex: Male
  Weight: 119 kg

DRUGS (16)
  1. DETRALEX [Concomitant]
     Active Substance: DIOSMIN\HESPERIDIN
     Indication: PERIPHERAL VENOUS DISEASE
     Dosage: 500 MG, 2X/DAY
     Route: 048
     Dates: start: 20171107
  2. ASCORUTIN [Concomitant]
     Active Substance: ASCORBIC ACID\RUTIN
     Indication: VITAMIN SUPPLEMENTATION
     Dosage: 100 MG, 2X/DAY
     Route: 048
     Dates: start: 20171107
  3. LYXUMIA [Concomitant]
     Active Substance: LIXISENATIDE
     Indication: DIABETES MELLITUS
     Dosage: 20 UG, 1X/DAY
     Route: 058
     Dates: start: 2012
  4. VELETRI [Concomitant]
     Active Substance: EPOPROSTENOL
     Indication: PULMONARY VASCULAR DISORDER
     Dosage: 3 MG, 1X/DAY
     Route: 042
     Dates: start: 20171020
  5. BETALOC ZOK [Concomitant]
     Active Substance: METOPROLOL SUCCINATE
     Indication: ATRIAL FIBRILLATION
     Dosage: 6.25 MG, 1X/DAY
     Route: 048
     Dates: start: 20171108
  6. FURORESE /00032601/ [Concomitant]
     Active Substance: FUROSEMIDE
     Dosage: 125 MG, DAILY AT MIDDAY
     Route: 048
     Dates: start: 20171108
  7. SILDENAFIL CITRATE. [Suspect]
     Active Substance: SILDENAFIL CITRATE
     Indication: PULMONARY ARTERIAL HYPERTENSION
     Dosage: 80 MG, 3X/DAY
     Route: 048
     Dates: start: 20170209, end: 20171214
  8. ATROVENT [Concomitant]
     Active Substance: IPRATROPIUM BROMIDE
     Indication: CHRONIC OBSTRUCTIVE PULMONARY DISEASE
     Dosage: 20 UG, 2X/DAY
     Route: 055
     Dates: start: 2013
  9. FURORESE /00032601/ [Concomitant]
     Active Substance: FUROSEMIDE
     Indication: CARDIAC FAILURE
     Dosage: 250 MG, DAILY IN THE MORNING
     Route: 048
     Dates: start: 20171108
  10. DIGOXIN. [Concomitant]
     Active Substance: DIGOXIN
     Indication: ATRIAL FIBRILLATION
     Dosage: 0.062 MG, ALTERNATE DAY
     Route: 048
     Dates: start: 20171105
  11. PREGABALIN. [Concomitant]
     Active Substance: PREGABALIN
     Indication: DIABETIC NEUROPATHY
     Dosage: 75 MG, DAILY IN THE MORNING
     Route: 048
     Dates: start: 20171106
  12. LITALIR [Concomitant]
     Active Substance: HYDROXYUREA
     Indication: MYELOFIBROSIS
     Dosage: 500 MG, ALTERNATE DAY
     Route: 048
     Dates: start: 20171020
  13. MILURIT [Concomitant]
     Active Substance: ALLOPURINOL
     Indication: HYPERURICAEMIA
     Dosage: 300 MG, 1X/DAY
     Route: 048
     Dates: start: 2010
  14. THIOGAMMA [Concomitant]
     Active Substance: THIOCTIC ACID
     Indication: DIABETIC NEUROPATHY
     Dosage: 600 MG, 1X/DAY
     Route: 048
     Dates: start: 2013
  15. PREGABALIN. [Concomitant]
     Active Substance: PREGABALIN
     Dosage: 150 MG, DAILY IN THE EVENING
     Route: 048
     Dates: start: 20171106
  16. SERTRALINE [Concomitant]
     Active Substance: SERTRALINE HYDROCHLORIDE
     Indication: PROPHYLAXIS
     Dosage: 50 MG, 1X/DAY
     Route: 048
     Dates: start: 201710

REACTIONS (2)
  - Anaemia [Recovered/Resolved]
  - Condition aggravated [Recovered/Resolved]

NARRATIVE: CASE EVENT DATE: 20171213
